FAERS Safety Report 25724131 (Version 1)
Quarter: 2025Q3

REPORT INFORMATION
  Report Type: Spontaneous
  Country: US (occurrence: US)
  Receive Date: 20250826
  Receipt Date: 20250826
  Transmission Date: 20251021
  Serious: No
  Sender: AUROBINDO
  Company Number: US-AUROBINDO-AUR-APL-2024-038226

PATIENT
  Age: 63 Year
  Sex: Female
  Weight: 81.6 kg

DRUGS (4)
  1. AZITHROMYCIN [Suspect]
     Active Substance: AZITHROMYCIN
     Indication: Product used for unknown indication
     Dosage: 2 DOSAGE FORM, ONCE A DAY
     Route: 065
     Dates: start: 20240723
  2. LYRICA [Concomitant]
     Active Substance: PREGABALIN
     Indication: Product used for unknown indication
     Route: 065
  3. SINGULAIR [Concomitant]
     Active Substance: MONTELUKAST SODIUM
     Indication: Product used for unknown indication
     Route: 065
  4. XYZAL [Concomitant]
     Active Substance: LEVOCETIRIZINE DIHYDROCHLORIDE
     Indication: Product used for unknown indication
     Route: 065

REACTIONS (8)
  - Abdominal pain upper [Unknown]
  - Diarrhoea [Unknown]
  - Glossodynia [Unknown]
  - Hypersensitivity [Unknown]
  - Oral discomfort [Unknown]
  - Pharyngeal swelling [Unknown]
  - Rash vesicular [Unknown]
  - Swelling face [Unknown]

NARRATIVE: CASE EVENT DATE: 20240723
